FAERS Safety Report 6892380-2 (Version None)
Quarter: 2010Q3

REPORT INFORMATION
  Report Type: 
  Country: None (occurrence: None)
  Receive Date: 20100731
  Receipt Date: 20080528
  Transmission Date: 20110219
  Serious: No
  Sender: FDA-Public Use
  Company Number: US-PFIZER INC-2008019273

PATIENT
  Sex: Male
  Weight: 86.363 kg

DRUGS (3)
  1. CAVERJECT [Suspect]
     Indication: ERECTILE DYSFUNCTION
     Dates: start: 20070101
  2. CAVERJECT [Suspect]
     Indication: ORGANIC ERECTILE DYSFUNCTION
  3. INSULIN [Concomitant]

REACTIONS (3)
  - CONTUSION [None]
  - DEVICE MALFUNCTION [None]
  - THERAPEUTIC RESPONSE DECREASED [None]
